FAERS Safety Report 9950691 (Version 1)
Quarter: 2014Q1

REPORT INFORMATION
  Report Type: Report from Study
  Country: US (occurrence: US)
  Receive Date: 20140304
  Receipt Date: 20140304
  Transmission Date: 20141002
  Serious: No
  Sender: FDA-Public Use
  Company Number: US-ABBVIE-13P-163-1069612-00

PATIENT
  Age: 54 Year
  Sex: Female

DRUGS (11)
  1. HUMIRA [Suspect]
     Indication: RHEUMATOID ARTHRITIS
     Dates: start: 20130201
  2. METHOTREXATE [Concomitant]
     Indication: RHEUMATOID ARTHRITIS
     Dosage: 10 TABLETS EVERY TUESDAY
  3. HYDROCODONE [Concomitant]
     Indication: PAIN
     Dosage: 10/500MG ONE TABLET THREE TIMES A DAY AS NEEDED
  4. ALPRAZOLAM XR [Concomitant]
     Indication: ANXIETY
     Dosage: EVERY AM
  5. MECLIZINE [Concomitant]
     Indication: DIZZINESS
     Dosage: 1/2-1 TABLET EVERY 6 HOURS AS NEEDED
  6. CLONAZEPAM [Concomitant]
     Indication: HEAD INJURY
     Dosage: AT NIGHT
  7. SERTRALINE [Concomitant]
     Indication: HEAD INJURY
     Dosage: EVERY NIGHT
  8. METHYLPHENIDATE [Concomitant]
     Indication: HEAD INJURY
  9. METOPROLOL TARTRATE [Concomitant]
     Indication: HYPERTENSION
     Dosage: 1/2 TABLET TWICE A DAY
  10. BLACK COHOSH EXTRACT [Concomitant]
     Indication: HOT FLUSH
  11. CALCIUM PLUS D [Concomitant]
     Indication: RHEUMATOID ARTHRITIS
     Dosage: 2 TABLETS DAILY

REACTIONS (4)
  - Fatigue [Not Recovered/Not Resolved]
  - Pyrexia [Not Recovered/Not Resolved]
  - Productive cough [Not Recovered/Not Resolved]
  - Diarrhoea [Not Recovered/Not Resolved]
